FAERS Safety Report 25921734 (Version 2)
Quarter: 2025Q4

REPORT INFORMATION
  Report Type: Spontaneous
  Country: US (occurrence: US)
  Receive Date: 20251014
  Receipt Date: 20251127
  Transmission Date: 20260117
  Serious: No
  Sender: AXSOME THERAPEUTICS
  Company Number: US-AXS-AXS202510-001772

PATIENT
  Sex: Female
  Weight: 106.59 kg

DRUGS (1)
  1. AUVELITY [Suspect]
     Active Substance: BUPROPION HYDROCHLORIDE\DEXTROMETHORPHAN HYDROBROMIDE
     Indication: Depression
     Route: 048

REACTIONS (5)
  - Frustration tolerance decreased [Unknown]
  - Depression [Unknown]
  - Irritability [Unknown]
  - Anger [Unknown]
  - Therapeutic product effect decreased [Unknown]
